FAERS Safety Report 20128885 (Version 1)
Quarter: 2021Q4

REPORT INFORMATION
  Report Type: Spontaneous
  Country: US (occurrence: US)
  Receive Date: 20211130
  Receipt Date: 20211130
  Transmission Date: 20220303
  Serious: No
  Sender: FDA-Public Use
  Company Number: US-Shield TX (UK) Ltd-US-STX-21-00005

PATIENT
  Sex: Female

DRUGS (1)
  1. ACCRUFER [Suspect]
     Active Substance: FERRIC MALTOL
     Indication: Product used for unknown indication
     Route: 048

REACTIONS (2)
  - Constipation [Recovered/Resolved]
  - Abdominal discomfort [Unknown]
